FAERS Safety Report 4431509-2 (Version None)
Quarter: 2004Q3

REPORT INFORMATION
  Report Type: 
  Country: None (occurrence: None)
  Receive Date: 20040824
  Receipt Date: 20040615
  Transmission Date: 20050211
  Serious: No
  Sender: FDA-Public Use
  Company Number: PHBS2004JP07960

PATIENT
  Age: 73 Year
  Sex: Female
  Weight: 39 kg

DRUGS (8)
  1. LAMISIL [Suspect]
     Indication: TINEA BLANCA
     Dosage: 125 MG/DAY
     Route: 048
     Dates: start: 20040603, end: 20040614
  2. SULFASALAZINE [Concomitant]
     Dosage: 3 G/D
     Route: 048
  3. HYPOCA [Concomitant]
     Dosage: 10 MG/D
     Route: 048
  4. ONE-ALPHA [Concomitant]
     Dosage: 0.5 MG/D
     Route: 048
  5. RESPLEN [Concomitant]
     Route: 048
     Dates: end: 20040609
  6. MUCODYNE [Concomitant]
     Dosage: 750 MG/D
     Route: 048
     Dates: start: 20040603, end: 20040609
  7. NIZORAL [Concomitant]
     Dosage: 20 G/D
     Route: 061
     Dates: start: 20040603
  8. ASTAT [Concomitant]
     Route: 061
     Dates: start: 20040603

REACTIONS (7)
  - COLITIS ULCERATIVE [None]
  - CONCOMITANT DISEASE AGGRAVATED [None]
  - GASTROINTESTINAL HAEMORRHAGE [None]
  - HAEMATOCHEZIA [None]
  - LOOSE STOOLS [None]
  - NERVOUSNESS [None]
  - RED BLOOD CELL COUNT DECREASED [None]
